FAERS Safety Report 21743889 (Version 1)
Quarter: 2022Q4

REPORT INFORMATION
  Report Type: Report from Study
  Country: US (occurrence: US)
  Receive Date: 20221217
  Receipt Date: 20221217
  Transmission Date: 20230113
  Serious: No
  Sender: FDA-Public Use
  Company Number: US-ABBVIE-4189366

PATIENT
  Age: 41 Year
  Sex: Male

DRUGS (1)
  1. RINVOQ [Suspect]
     Active Substance: UPADACITINIB
     Indication: Psoriasis
     Route: 048
     Dates: start: 20220810

REACTIONS (4)
  - Pruritus [Unknown]
  - Infection [Not Recovered/Not Resolved]
  - Erythema [Unknown]
  - Scratch [Unknown]

NARRATIVE: CASE EVENT DATE: 20221026
